FAERS Safety Report 9694053 (Version 1)
Quarter: 2013Q4

REPORT INFORMATION
  Report Type: Spontaneous
  Country: CA (occurrence: CA)
  Receive Date: 20131118
  Receipt Date: 20131118
  Transmission Date: 20140711
  Serious: Yes (Hospitalization, Other)
  Sender: FDA-Public Use
  Company Number: CA-ROCHE-1303097

PATIENT
  Age: 52 Year
  Sex: Male

DRUGS (7)
  1. CLONAZEPAM [Suspect]
     Indication: PRODUCT USED FOR UNKNOWN INDICATION
     Route: 065
  2. CITALOPRAM [Suspect]
     Indication: PRODUCT USED FOR UNKNOWN INDICATION
     Route: 065
  3. QUETIAPINE [Suspect]
     Indication: PRODUCT USED FOR UNKNOWN INDICATION
     Route: 065
  4. RISPERIDONE [Suspect]
     Indication: PRODUCT USED FOR UNKNOWN INDICATION
     Route: 065
  5. ZOPICLONE [Suspect]
     Indication: PRODUCT USED FOR UNKNOWN INDICATION
     Route: 065
  6. LAMOTRIGINE [Concomitant]
     Route: 065
  7. VALPROIC ACID [Concomitant]
     Route: 065

REACTIONS (14)
  - Abnormal behaviour [Unknown]
  - Agitation [Unknown]
  - Blood creatine phosphokinase increased [Unknown]
  - Disorientation [Unknown]
  - Drug ineffective [Unknown]
  - Hallucination, auditory [Unknown]
  - Hypertension [Unknown]
  - Hypertonia [Unknown]
  - Muscle rigidity [Unknown]
  - Neuroleptic malignant syndrome [Unknown]
  - Psychiatric symptom [Unknown]
  - Speech disorder [Unknown]
  - Tachycardia [Unknown]
  - Tremor [Unknown]
